FAERS Safety Report 10791641 (Version 1)
Quarter: 2015Q1

REPORT INFORMATION
  Report Type: Spontaneous
  Country: CA (occurrence: CA)
  Receive Date: 20150213
  Receipt Date: 20150213
  Transmission Date: 20150721
  Serious: Yes (Other)
  Sender: FDA-Public Use
  Company Number: CA-ROCHE-1536953

PATIENT
  Sex: Male

DRUGS (3)
  1. SOVALDI [Suspect]
     Active Substance: SOFOSBUVIR
     Indication: HEPATITIS C
     Dosage: TREATMENT DURATION: 3 MONTHS
     Route: 065
     Dates: start: 20140814
  2. COPEGUS [Suspect]
     Active Substance: RIBAVIRIN
     Indication: HEPATITIS C
     Dosage: 42 TABS; TREATMENT DURATION: 3 MONTHS
     Route: 065
     Dates: start: 20140814
  3. PEGASYS [Suspect]
     Active Substance: PEGINTERFERON ALFA-2A
     Indication: HEPATITIS C
     Dosage: TREATMENT DURATION: 3 MONTHS
     Route: 065
     Dates: start: 20140814

REACTIONS (2)
  - Hepatitis C [Unknown]
  - Drug ineffective [Unknown]
